FAERS Safety Report 13875838 (Version 1)
Quarter: 2017Q3

REPORT INFORMATION
  Report Type: Report from Study
  Country: CA (occurrence: CA)
  Receive Date: 20170817
  Receipt Date: 20170817
  Transmission Date: 20171127
  Serious: Yes (Other)
  Sender: FDA-Public Use
  Company Number: CA-EMD SERONO-E2B_80072840

PATIENT
  Age: 36 Year
  Sex: Female

DRUGS (3)
  1. LUVERIS [Suspect]
     Active Substance: LUTROPIN ALFA
     Indication: INFERTILITY
     Route: 058
     Dates: start: 20170614
  2. GONAL-F [Suspect]
     Active Substance: FOLLITROPIN
     Indication: INFERTILITY
     Dates: start: 20170614
  3. CETROTIDE [Suspect]
     Active Substance: CETRORELIX ACETATE
     Indication: INFERTILITY
     Dosage: STARTED ON 19 JUN 2017

REACTIONS (3)
  - Headache [Recovered/Resolved]
  - Eye haemorrhage [Recovered/Resolved]
  - Vaginal discharge [Unknown]

NARRATIVE: CASE EVENT DATE: 20170617
